FAERS Safety Report 8502203-3 (Version None)
Quarter: 2012Q2

REPORT INFORMATION
  Report Type: 
  Country: None (occurrence: None)
  Receive Date: 20120405
  Receipt Date: 20101006
  Transmission Date: 20120825
  Serious: Yes (Other)
  Sender: FDA-Public Use
  Company Number: PHHY2010US60565

PATIENT
  Age: 55 Year
  Sex: Female
  Weight: 69.8 kg

DRUGS (10)
  1. DIOVAN [Concomitant]
  2. SIMVASTATIN [Concomitant]
  3. ACETAMINOPHEN [Concomitant]
  4. EFFEXOR [Concomitant]
  5. NAPROXEN (ALEVE) [Concomitant]
  6. AMBIEN [Concomitant]
  7. RESTASIS [Concomitant]
  8. RECLAST [Suspect]
     Indication: OSTEOPENIA
     Dosage: 5 MG, INTRAVENOUS
     Route: 042
     Dates: start: 20100907
  9. METHOTREAT (METHOTREXATE) [Concomitant]
  10. AMOXICILLIN [Concomitant]

REACTIONS (11)
  - INFLUENZA LIKE ILLNESS [None]
  - EAR PAIN [None]
  - HEADACHE [None]
  - HEAD DISCOMFORT [None]
  - DYSPNOEA [None]
  - NASAL CONGESTION [None]
  - MUSCULOSKELETAL STIFFNESS [None]
  - EYE IRRITATION [None]
  - MALAISE [None]
  - MUSCULOSKELETAL CHEST PAIN [None]
  - LYMPHADENOPATHY [None]
